FAERS Safety Report 22793933 (Version 4)
Quarter: 2023Q4

REPORT INFORMATION
  Report Type: Spontaneous
  Country: US (occurrence: US)
  Receive Date: 20230807
  Receipt Date: 20231009
  Transmission Date: 20240110
  Serious: No
  Sender: FDA-Public Use
  Company Number: US-PFIZER INC-202300262186

PATIENT
  Age: 26 Year
  Sex: Female
  Weight: 56.7 kg

DRUGS (1)
  1. DEPO-PROVERA [Suspect]
     Active Substance: MEDROXYPROGESTERONE ACETATE
     Indication: Contraception
     Dosage: 150 MG, EVERY 13 WEEKS
     Dates: start: 20230724

REACTIONS (4)
  - Incorrect route of product administration [Unknown]
  - Product administered at inappropriate site [Unknown]
  - Injection site discolouration [Recovered/Resolved]
  - Vein discolouration [Recovered/Resolved]

NARRATIVE: CASE EVENT DATE: 20230724
